FAERS Safety Report 14307353 (Version 1)
Quarter: 2017Q4

REPORT INFORMATION
  Report Type: Spontaneous
  Country: US (occurrence: US)
  Receive Date: 20171219
  Receipt Date: 20171219
  Transmission Date: 20180321
  Serious: Yes (Death, Life-Threatening, Hospitalization)
  Sender: FDA-Public Use
  Company Number: None

PATIENT
  Age: 76 Year
  Sex: Female
  Weight: 71 kg

DRUGS (1)
  1. TAMIFLU [Suspect]
     Active Substance: OSELTAMIVIR PHOSPHATE
     Indication: INFLUENZA A VIRUS TEST POSITIVE
     Dates: start: 20171115, end: 20171117

REACTIONS (5)
  - Oral mucosal exfoliation [None]
  - Blister [None]
  - Anorectal disorder [None]
  - Rash [None]
  - Oral disorder [None]

NARRATIVE: CASE EVENT DATE: 20171117
